FAERS Safety Report 5946994-4 (Version None)
Quarter: 2008Q4

REPORT INFORMATION
  Report Type: 
  Country: None (occurrence: None)
  Receive Date: 20081110
  Receipt Date: 20081106
  Transmission Date: 20090506
  Serious: Yes (Death)
  Sender: FDA-Public Use
  Company Number: CN-ABBOTT-08P-035-0485924-00

PATIENT
  Age: 50 Year
  Sex: Female

DRUGS (3)
  1. ALUVIA TABLETS 200MG/50MG [Suspect]
     Indication: ACQUIRED IMMUNODEFICIENCY SYNDROME
     Route: 048
     Dates: start: 20080612, end: 20081015
  2. LAMIVUDINE [Concomitant]
     Indication: ACQUIRED IMMUNODEFICIENCY SYNDROME
     Route: 048
     Dates: start: 20030101, end: 20081015
  3. TENOFOVIR [Concomitant]
     Indication: ACQUIRED IMMUNODEFICIENCY SYNDROME
     Route: 048
     Dates: start: 20080612, end: 20081015

REACTIONS (1)
  - COMPLETED SUICIDE [None]
